FAERS Safety Report 7374182-6 (Version None)
Quarter: 2011Q1

REPORT INFORMATION
  Report Type: 
  Country: None (occurrence: None)
  Receive Date: 20110325
  Receipt Date: 20110322
  Transmission Date: 20110831
  Serious: Yes (Other)
  Sender: FDA-Public Use
  Company Number: US-PFIZER INC-2011017927

PATIENT
  Sex: Female
  Weight: 68.027 kg

DRUGS (2)
  1. NITROSTAT [Suspect]
     Indication: CHEST PAIN
     Dosage: 0.4 MG, AS NEEDED
     Dates: start: 20050101
  2. NITROSTAT [Suspect]
     Indication: MYOCARDIAL INFARCTION

REACTIONS (3)
  - MYOCARDIAL INFARCTION [None]
  - DRUG INEFFECTIVE [None]
  - ORAL DISCOMFORT [None]
